FAERS Safety Report 20932824 (Version 1)
Quarter: 2022Q2

REPORT INFORMATION
  Report Type: Spontaneous
  Country: US (occurrence: US)
  Receive Date: 20220608
  Receipt Date: 20220608
  Transmission Date: 20220721
  Serious: Yes (Other)
  Sender: FDA-Public Use
  Company Number: US-SA-SAC20220605000026

PATIENT
  Age: 57 Year
  Sex: Female

DRUGS (2)
  1. ZANTAC [Suspect]
     Active Substance: RANITIDINE HYDROCHLORIDE
     Indication: Dyspepsia
     Dosage: 150 MG
     Dates: start: 199305, end: 201812
  2. ZANTAC [Suspect]
     Active Substance: RANITIDINE HYDROCHLORIDE
     Indication: Abdominal discomfort

REACTIONS (6)
  - Bladder cancer stage IV [Not Recovered/Not Resolved]
  - Breast cancer stage IV [Not Recovered/Not Resolved]
  - Hepatic cancer stage IV [Not Recovered/Not Resolved]
  - Gastric cancer stage IV [Not Recovered/Not Resolved]
  - Brain neoplasm malignant [Not Recovered/Not Resolved]
  - Disease progression [Not Recovered/Not Resolved]

NARRATIVE: CASE EVENT DATE: 20161101
